FAERS Safety Report 4930945-5 (Version None)
Quarter: 2006Q1

REPORT INFORMATION
  Report Type: 
  Country: None (occurrence: None)
  Receive Date: 20060227
  Receipt Date: 20060214
  Transmission Date: 20060701
  Serious: Yes (Other)
  Sender: FDA-Public Use
  Company Number: 163-20785-05050076

PATIENT
  Age: 70 Year
  Sex: Female

DRUGS (8)
  1. THALOMID [Suspect]
     Indication: MULTIPLE MYELOMA
     Dosage: SEE IMAGE, ORAL
     Route: 048
     Dates: start: 20050418, end: 20050424
  2. THALOMID [Suspect]
     Indication: MULTIPLE MYELOMA
     Dosage: SEE IMAGE, ORAL
     Route: 048
     Dates: start: 20050425
  3. PERCOCET [Concomitant]
  4. ATENOLOL [Concomitant]
  5. COUMADIN [Concomitant]
  6. PHENERGAN [Concomitant]
  7. TRICOR [Concomitant]
  8. LANOXIN [Concomitant]

REACTIONS (12)
  - BALANCE DISORDER [None]
  - BURNING SENSATION [None]
  - DYSGEUSIA [None]
  - DYSPHONIA [None]
  - HYPOAESTHESIA [None]
  - LARYNGITIS [None]
  - MALAISE [None]
  - NASOPHARYNGITIS [None]
  - NAUSEA [None]
  - THYROID DISORDER [None]
  - TREMOR [None]
  - VOCAL CORD PARALYSIS [None]
